FAERS Safety Report 6220166-0 (Version None)
Quarter: 2009Q2

REPORT INFORMATION
  Report Type: 
  Country: None (occurrence: None)
  Receive Date: 20090609
  Receipt Date: 20090602
  Transmission Date: 20091009
  Serious: Yes (Other)
  Sender: FDA-Public Use
  Company Number: PHHO2009US06105

PATIENT
  Sex: Male
  Weight: 78.19 kg

DRUGS (5)
  1. ALISKIREN ALI+TAB [Suspect]
     Indication: HYPERTENSION
     Dosage: DOUBLE BLIND
     Route: 048
     Dates: start: 20090505, end: 20090514
  2. VALSARTAN [Suspect]
     Indication: HYPERTENSION
     Dosage: UNKNOWN
     Route: 048
     Dates: start: 20090505, end: 20090514
  3. LIPITOR [Concomitant]
  4. NEXIUM [Concomitant]
     Indication: GASTROOESOPHAGEAL REFLUX DISEASE
  5. ASPIRIN [Concomitant]

REACTIONS (10)
  - ANXIETY [None]
  - BLOOD PRESSURE INCREASED [None]
  - CHEST DISCOMFORT [None]
  - CHEST PAIN [None]
  - DRUG INEFFECTIVE [None]
  - HEART RATE IRREGULAR [None]
  - PAIN IN EXTREMITY [None]
  - PALPITATIONS [None]
  - PARAESTHESIA [None]
  - SUPRAVENTRICULAR EXTRASYSTOLES [None]
